FAERS Safety Report 7639903-3 (Version None)
Quarter: 2011Q3

REPORT INFORMATION
  Report Type: 
  Country: None (occurrence: None)
  Receive Date: 20110727
  Receipt Date: 20110722
  Transmission Date: 20111222
  Serious: Yes (Hospitalization, Other)
  Sender: FDA-Public Use
  Company Number: GB-PFIZER INC-2011168109

PATIENT
  Age: 44 Year
  Sex: Male
  Weight: 85 kg

DRUGS (4)
  1. ACETAMINOPHEN AND CODEINE PHOSPHATE [Concomitant]
  2. SERTRALINE HYDROCHLORIDE [Suspect]
     Indication: DEPRESSION
     Dosage: 100 MG, UNK
     Route: 048
     Dates: start: 20110105, end: 20110712
  3. ATORVASTATIN [Concomitant]
  4. OMEPRAZOLE [Concomitant]

REACTIONS (2)
  - HYPERLIPIDAEMIA [None]
  - PANCREATITIS [None]
